FAERS Safety Report 5464428-3 (Version None)
Quarter: 2007Q3

REPORT INFORMATION
  Report Type: 
  Country: None (occurrence: None)
  Receive Date: 20070921
  Receipt Date: 20070917
  Transmission Date: 20080115
  Serious: Yes (Other)
  Sender: FDA-Public Use
  Company Number: PL-JNJFOC-20070903464

PATIENT
  Sex: Female

DRUGS (1)
  1. NORGESTIMATE AND ETHINYL ESTRADIOL [Suspect]
     Indication: CONTRACEPTION
     Route: 048

REACTIONS (2)
  - HEADACHE [None]
  - VISUAL DISTURBANCE [None]
